FAERS Safety Report 5422773-1 (Version None)
Quarter: 2007Q3

REPORT INFORMATION
  Report Type: 
  Country: None (occurrence: None)
  Receive Date: 20070820
  Receipt Date: 20070808
  Transmission Date: 20080115
  Serious: Yes (Other)
  Sender: FDA-Public Use
  Company Number: 236416K07USA

PATIENT
  Age: 59 Year
  Sex: Female

DRUGS (8)
  1. REBIF [Suspect]
     Indication: MULTIPLE SCLEROSIS
     Dosage: 44 MCG, 3 IN 1 WEEKS, SUBCUTANEOUS
     Route: 058
     Dates: start: 20061120
  2. EVISTA [Concomitant]
  3. TRIAMTERENE (TRIAMTERENE) [Concomitant]
  4. PROZAC [Concomitant]
  5. DETROL [Concomitant]
  6. GLUCOSAMINE CHONDROITIN SULFATE (JOINT FOOD) [Concomitant]
  7. VITAMIN D [Concomitant]
  8. PRILOSEC [Concomitant]

REACTIONS (7)
  - CONDITION AGGRAVATED [None]
  - DISEASE PROGRESSION [None]
  - FEELING ABNORMAL [None]
  - JOINT DISLOCATION [None]
  - MULTIPLE SCLEROSIS [None]
  - NO THERAPEUTIC RESPONSE [None]
  - OSTEOARTHRITIS [None]
